FAERS Safety Report 12609431 (Version 1)
Quarter: 2016Q3

REPORT INFORMATION
  Report Type: Spontaneous
  Country: NO (occurrence: NO)
  Receive Date: 20160801
  Receipt Date: 20160801
  Transmission Date: 20161109
  Serious: Yes (Other)
  Sender: FDA-Public Use
  Company Number: NO-GLENMARK PHARMACEUTICALS INC, USA.-2016GMK023753

PATIENT
  Age: 5 Decade
  Sex: Male

DRUGS (4)
  1. DEXAMETHASONE. [Suspect]
     Active Substance: DEXAMETHASONE
     Dosage: 0.4 MG, UNK, ONE TABLESPOON; HERBAL MEDICINAL POWDER
     Route: 048
  2. DEXAMETHASONE. [Suspect]
     Active Substance: DEXAMETHASONE
     Indication: BACK PAIN
     Dosage: 0.1 MG, UNK, ONE HEAPED TEASPOON HERBAL MEDICINAL POWDER
     Route: 048
  3. INDOMETHACIN. [Suspect]
     Active Substance: INDOMETHACIN
     Indication: BACK PAIN
     Dosage: 10 MG, UNK, ONE HEAPED TEASPOON HERBAL MEDICINAL POWDER
     Route: 048
  4. INDOMETHACIN. [Suspect]
     Active Substance: INDOMETHACIN
     Dosage: 40 MG, UNK, ONE TABLESPOON; HERBAL MEDICINAL POWDER
     Route: 048

REACTIONS (1)
  - Cushing^s syndrome [Recovered/Resolved]
